FAERS Safety Report 16391274 (Version 1)
Quarter: 2019Q2

REPORT INFORMATION
  Report Type: Spontaneous
  Country: GB (occurrence: GB)
  Receive Date: 20190604
  Receipt Date: 20190604
  Transmission Date: 20190711
  Serious: Yes (Other)
  Sender: FDA-Public Use
  Company Number: PHHY2019GB107937

PATIENT
  Age: 35 Year
  Sex: Male

DRUGS (3)
  1. OLANZAPINE. [Suspect]
     Active Substance: OLANZAPINE
     Dosage: 15 MG, QD
     Route: 048
  2. ZUCLOPENTHIXOL [Concomitant]
     Active Substance: ZUCLOPENTHIXOL
     Indication: SCHIZOPHRENIA
     Dosage: 60 MG, QD
     Route: 048
  3. OLANZAPINE. [Suspect]
     Active Substance: OLANZAPINE
     Indication: SCHIZOPHRENIA
     Dosage: 60 MG, QD
     Route: 048

REACTIONS (8)
  - Intentional overdose [Unknown]
  - Drug withdrawal syndrome [Recovering/Resolving]
  - Paranoia [Recovering/Resolving]
  - Intentional product misuse [Unknown]
  - Product administration interrupted [Unknown]
  - Therapeutic response decreased [Unknown]
  - Withdrawal syndrome [Recovering/Resolving]
  - Inappropriate schedule of product administration [Unknown]
